FAERS Safety Report 4513107-5 (Version None)
Quarter: 2004Q4

REPORT INFORMATION
  Report Type: 
  Country: None (occurrence: None)
  Receive Date: 20040928
  Receipt Date: 20040701
  Transmission Date: 20050328
  Serious: No
  Sender: FDA-Public Use
  Company Number: 04P-163-0265385-00

PATIENT
  Age: 59 Year
  Sex: Female
  Weight: 72.5755 kg

DRUGS (9)
  1. HUMIRA [Suspect]
     Indication: RHEUMATOID ARTHRITIS
     Dosage: 40 MG, 1 IN 2 WK, SUBCUTANEOUS
     Route: 058
     Dates: start: 20040519, end: 20040630
  2. CELECOXIB [Concomitant]
  3. CALCITONIN-SALMON [Concomitant]
  4. SERTRALINE HYDROCHLORIDE [Concomitant]
  5. QUINAPRIL HYDROCHLORIDE [Concomitant]
  6. ESOMEPRAZOLE [Concomitant]
  7. ALPRAZOLAM [Concomitant]
  8. HYDROCODONE [Concomitant]
  9. ATENOLOL [Concomitant]

REACTIONS (3)
  - CONDITION AGGRAVATED [None]
  - DERMATITIS ALLERGIC [None]
  - ERYTHEMA [None]
